FAERS Safety Report 9969636 (Version 1)
Quarter: 2014Q1

REPORT INFORMATION
  Report Type: Spontaneous
  Country: US (occurrence: None)
  Receive Date: 20140130
  Receipt Date: 20140130
  Transmission Date: 20141002
  Serious: Yes (Other)
  Sender: FDA-Public Use
  Company Number: PHEH2013US025967

PATIENT
  Age: 68 Year
  Sex: Female

DRUGS (2)
  1. ARCAPTA [Suspect]
     Indication: COCCIDIOIDOMYCOSIS
  2. FLUCONAZOLE (FLUCONAZOLE) [Suspect]

REACTIONS (2)
  - Dyspnoea [None]
  - Cough [None]
